FAERS Safety Report 17852305 (Version 3)
Quarter: 2020Q3

REPORT INFORMATION
  Report Type: Report from Study
  Country: US (occurrence: US)
  Receive Date: 20200602
  Receipt Date: 20200722
  Transmission Date: 20201103
  Serious: Yes (Hospitalization)
  Sender: FDA-Public Use
  Company Number: US-ACTELION-A-US2020-205643

PATIENT
  Age: 9 Year
  Sex: Male
  Weight: 26.3 kg

DRUGS (3)
  1. ADCIRCA [Concomitant]
     Active Substance: TADALAFIL
  2. TRACLEER [Suspect]
     Active Substance: BOSENTAN
     Indication: PULMONARY HYPERTENSION
     Dosage: 125 MG, BID
     Route: 048
     Dates: start: 20200504
  3. REMODULIN [Concomitant]
     Active Substance: TREPROSTINIL

REACTIONS (5)
  - Dizziness postural [Unknown]
  - Heart transplant [Unknown]
  - Cardiac disorder [Unknown]
  - Flushing [Unknown]
  - Hypotension [Unknown]

NARRATIVE: CASE EVENT DATE: 20200625
